FAERS Safety Report 19495516 (Version 2)
Quarter: 2021Q3

REPORT INFORMATION
  Report Type: Spontaneous
  Country: US (occurrence: US)
  Receive Date: 20210706
  Receipt Date: 20210721
  Transmission Date: 20211014
  Serious: No
  Sender: FDA-Public Use
  Company Number: US-IPSEN BIOPHARMACEUTICALS, INC.-2021-16357

PATIENT
  Age: 53 Year
  Sex: Female

DRUGS (1)
  1. DYSPORT [Suspect]
     Active Substance: ABOBOTULINUMTOXINA
     Indication: SKIN COSMETIC PROCEDURE
     Dosage: DOSE NOT REPORTED
     Route: 065

REACTIONS (3)
  - Feeling abnormal [Unknown]
  - Asthenopia [Recovered/Resolved]
  - Eyelid ptosis [Recovered/Resolved]
